FAERS Safety Report 7540294-7 (Version None)
Quarter: 2011Q2

REPORT INFORMATION
  Report Type: 
  Country: None (occurrence: None)
  Receive Date: 20110610
  Receipt Date: 20110531
  Transmission Date: 20111010
  Serious: Yes (Hospitalization, Other)
  Sender: FDA-Public Use
  Company Number: PHHY2011AT26785

PATIENT
  Age: 40 Year
  Sex: Male

DRUGS (2)
  1. GLEEVEC [Suspect]
     Dosage: 2 TIMES, EACH TIME ABOUT THREE MONTHS
  2. GLEEVEC [Suspect]
     Indication: GASTROINTESTINAL STROMAL TUMOUR
     Dosage: 400 MG,
     Route: 065

REACTIONS (6)
  - GASTROINTESTINAL INFLAMMATION [None]
  - INTESTINAL PERFORATION [None]
  - FISTULA [None]
  - ILEUS [None]
  - ABDOMINAL DISCOMFORT [None]
  - SEROSITIS [None]
